FAERS Safety Report 6522108-7 (Version None)
Quarter: 2009Q4

REPORT INFORMATION
  Report Type: 
  Country: None (occurrence: None)
  Receive Date: 20091229
  Receipt Date: 20091229
  Transmission Date: 20100525
  Serious: No
  Sender: FDA-Public Use
  Company Number: None

PATIENT
  Age: 60 Year
  Sex: Female
  Weight: 38 kg

DRUGS (10)
  1. HYDROMORPHONE HCL [Suspect]
     Indication: PAIN
     Dosage: 0/0.5/10 PCA
     Dates: start: 20091024, end: 20091025
  2. BUPROPION HCL [Concomitant]
  3. COLACE [Concomitant]
  4. DEXAMETHASONE [Concomitant]
  5. LEVOTHYROXINE SODIUM [Concomitant]
  6. LICO3 [Concomitant]
  7. PREVACID [Concomitant]
  8. SENNA [Concomitant]
  9. PROMETHAZINE [Concomitant]
  10. TEMAZEPAN [Concomitant]

REACTIONS (3)
  - BLOOD PRESSURE DECREASED [None]
  - RESPIRATORY RATE DECREASED [None]
  - UNRESPONSIVE TO STIMULI [None]
